FAERS Safety Report 9156027 (Version 20)
Quarter: 2014Q2

REPORT INFORMATION
  Report Type: Report from Study
  Country: DE (occurrence: DE)
  Receive Date: 20130311
  Receipt Date: 20140519
  Transmission Date: 20141212
  Serious: Yes (Hospitalization, Other)
  Sender: FDA-Public Use
  Company Number: DE-ROCHE-1191152

PATIENT
  Age: 52 Year
  Sex: Female
  Weight: 53 kg

DRUGS (10)
  1. TRASTUZUMAB EMTANSINE [Suspect]
     Indication: HER-2 POSITIVE BREAST CANCER
     Dosage: DOSE 3.6MG/KG AS PER PROTOCOL.  LAST DOSE:01/FEB/2013. LAST DOSE PRIOR TO THE LIFE THREATENING THROM
     Route: 042
     Dates: start: 20130201, end: 20130314
  2. TRASTUZUMAB EMTANSINE [Suspect]
     Dosage: DOSE REDUCED TO 3.0MG/KG DUE TO EVENTS.
     Route: 042
     Dates: start: 20130314, end: 20130329
  3. CIPROFLOXACIN [Concomitant]
     Route: 065
     Dates: start: 20130205, end: 20130210
  4. ALLOPURINOL [Concomitant]
     Route: 048
     Dates: start: 20130212
  5. MCP TROPFEN [Concomitant]
     Route: 048
     Dates: start: 20130212
  6. PANTOZOL (GERMANY) [Concomitant]
     Route: 048
     Dates: start: 20130212
  7. BEPANTHEN (GERMANY) [Concomitant]
     Route: 061
  8. TOREM [Concomitant]
     Route: 048
     Dates: start: 20130212
  9. NOVALGIN (GERMANY) [Concomitant]
     Route: 048
  10. AUGMENTIN [Concomitant]
     Dosage: 875/125 MG
     Route: 048
     Dates: start: 20130212, end: 20130222

REACTIONS (4)
  - Infection [Not Recovered/Not Resolved]
  - Pyrexia [Recovered/Resolved]
  - Ascites [Recovered/Resolved]
  - Thrombocytopenia [Recovered/Resolved]
